FAERS Safety Report 7391185-6 (Version None)
Quarter: 2011Q2

REPORT INFORMATION
  Report Type: 
  Country: None (occurrence: None)
  Receive Date: 20110404
  Receipt Date: 20100423
  Transmission Date: 20111010
  Serious: No
  Sender: FDA-Public Use
  Company Number: US-PFIZER INC-2010032071

PATIENT
  Sex: Male
  Weight: 27 kg

DRUGS (4)
  1. CLONIDINE [Concomitant]
     Dosage: UNK
  2. LEXAPRO [Concomitant]
     Dosage: UNK, DAILY
  3. GENOTROPIN [Suspect]
     Indication: SILVER-RUSSELL SYNDROME
     Dosage: 1.7 MG, DAILY
     Route: 058
     Dates: start: 20061001
  4. CONCERTA [Concomitant]
     Dosage: UNK

REACTIONS (1)
  - INJURY [None]
